FAERS Safety Report 5212186-X (Version None)
Quarter: 2006Q4

REPORT INFORMATION
  Report Type: 
  Country: None (occurrence: None)
  Receive Date: 20061114
  Receipt Date: 20060828
  Transmission Date: 20070319
  Serious: Yes (Other)
  Sender: FDA-Public Use
  Company Number: S06-USA-03483-01

PATIENT
  Age: 81 Year
  Sex: Female

DRUGS (19)
  1. NAMENDA [Suspect]
     Indication: DEMENTIA ALZHEIMER'S TYPE
     Dosage: 10 MG BID PO
     Route: 048
     Dates: start: 20050922
  2. NAMENDA [Suspect]
     Indication: DEMENTIA ALZHEIMER'S TYPE
     Dosage: 5 MG QD PO
     Route: 048
     Dates: start: 20050901, end: 20050907
  3. NAMENDA [Suspect]
     Indication: DEMENTIA ALZHEIMER'S TYPE
     Dosage: 5 MG BID PO
     Route: 048
     Dates: start: 20050908, end: 20050914
  4. NAMENDA [Suspect]
     Indication: DEMENTIA ALZHEIMER'S TYPE
     Dosage: 15 MG QD PO
     Route: 048
     Dates: start: 20050915, end: 20050921
  5. ARICEPT [Suspect]
     Indication: DEMENTIA ALZHEIMER'S TYPE
     Dosage: 10 MG QHS PO
     Route: 048
     Dates: start: 20050901, end: 20060830
  6. ARICEPT [Suspect]
     Indication: DEMENTIA ALZHEIMER'S TYPE
     Dosage: 5 MG QHS PO
     Route: 048
     Dates: start: 20060831
  7. CLONAZEPAM [Concomitant]
  8. LORTAB [Concomitant]
  9. LORAZEPAM [Concomitant]
  10. WARFARIN SODIUM [Concomitant]
  11. METOPROLOL TARTRATE [Concomitant]
  12. PROTONIX [Concomitant]
  13. FUROSEMIDE [Concomitant]
  14. POTASSIUM ACETATE [Concomitant]
  15. TYLENOL [Concomitant]
  16. GUAIFENESIN [Concomitant]
  17. LOPERAMIDE HCL [Concomitant]
  18. MILK OF MAGNESIA [Concomitant]
  19. DUROLAX (BISACODYL) [Concomitant]

REACTIONS (2)
  - ANGER [None]
  - TARDIVE DYSKINESIA [None]
